FAERS Safety Report 8294758 (Version 15)
Quarter: 2015Q2

REPORT INFORMATION
  Report Type: Report from Study
  Country: IL (occurrence: IL)
  Receive Date: 20111216
  Receipt Date: 20150420
  Transmission Date: 20150821
  Serious: Yes (Hospitalization)
  Sender: FDA-Public Use
  Company Number: IL-ROCHE-794072

PATIENT
  Age: 61 Year
  Sex: Female
  Weight: 81.2 kg

DRUGS (18)
  1. PRAMIN (METOCLOPRAMIDE HYDROCHLORIDE) [Concomitant]
  2. KYTRIL [Concomitant]
     Active Substance: GRANISETRON HYDROCHLORIDE
     Route: 065
     Dates: start: 20110731, end: 20110802
  3. MORPHINE [Concomitant]
     Active Substance: MORPHINE
     Route: 065
     Dates: start: 20110731, end: 20110802
  4. VITAMIN E [Concomitant]
     Active Substance: .ALPHA.-TOCOPHEROL
  5. LOSARTAN [Concomitant]
     Active Substance: LOSARTAN
  6. SIMVACOR [Concomitant]
     Active Substance: SIMVASTATIN
  7. VEMURAFENIB [Suspect]
     Active Substance: VEMURAFENIB
     Indication: METASTATIC MALIGNANT MELANOMA
     Dosage: LAST DOSE PRIOR TO SAE - 28 JULY 2011
     Route: 048
     Dates: start: 20110718, end: 20110728
  8. CARDILOC [Concomitant]
     Active Substance: BISOPROLOL FUMARATE
  9. VEMURAFENIB [Suspect]
     Active Substance: VEMURAFENIB
     Dosage: DOSE REDUCED.
     Route: 048
  10. VITAMIN B12 [Concomitant]
     Active Substance: CYANOCOBALAMIN
     Dosage: DOSE: 1000MCG
     Route: 065
  11. DIPYRONE [Concomitant]
     Active Substance: DIPYRONE
     Dosage: DOSE: 100 DROP
     Route: 065
     Dates: start: 20110426
  12. IPRATROPIUM BROMIDE. [Concomitant]
     Active Substance: IPRATROPIUM BROMIDE
     Route: 065
     Dates: start: 20110519
  13. MICROPIRIN [Concomitant]
  14. DEXAMETHASONE. [Concomitant]
     Active Substance: DEXAMETHASONE
     Route: 065
     Dates: start: 20110609, end: 20110815
  15. DEXAMETHASONE. [Concomitant]
     Active Substance: DEXAMETHASONE
     Route: 065
     Dates: start: 20110815
  16. METFORMIN HYDROCHLORIDE. [Concomitant]
     Active Substance: METFORMIN HYDROCHLORIDE
  17. VENTOLIN [Concomitant]
     Active Substance: ALBUTEROL SULFATE
     Route: 065
     Dates: start: 20110519
  18. PHENTANYL [Concomitant]
     Active Substance: FENTANYL
     Dosage: DOSE: 50 MCG
     Route: 065
     Dates: start: 20110731, end: 20110731

REACTIONS (1)
  - Anaemia [Recovered/Resolved]

NARRATIVE: CASE EVENT DATE: 20110731
